FAERS Safety Report 13951922 (Version 1)
Quarter: 2017Q3

REPORT INFORMATION
  Report Type: Spontaneous
  Country: FR (occurrence: FR)
  Receive Date: 20170910
  Receipt Date: 20170910
  Transmission Date: 20171128
  Serious: Yes (Other)
  Sender: FDA-Public Use
  Company Number: FR-MERCK KGAA-2025834

PATIENT
  Age: 52 Year
  Sex: Female

DRUGS (1)
  1. NOVOTHYROX [Suspect]
     Active Substance: LEVOTHYROXINE SODIUM
     Indication: POST PROCEDURAL HYPOTHYROIDISM
     Route: 065
     Dates: start: 2017

REACTIONS (12)
  - Weight increased [Unknown]
  - Cardiac discomfort [Unknown]
  - Peripheral swelling [Unknown]
  - Tachycardia [Unknown]
  - Nausea [Unknown]
  - Dyspnoea [Unknown]
  - Amnesia [Unknown]
  - Somnolence [Unknown]
  - Eye disorder [Unknown]
  - Malaise [Unknown]
  - Ocular hyperaemia [Unknown]
  - Ocular discomfort [Unknown]

NARRATIVE: CASE EVENT DATE: 201705
